FAERS Safety Report 6977263-1 (Version None)
Quarter: 2010Q3

REPORT INFORMATION
  Report Type: 
  Country: None (occurrence: None)
  Receive Date: 20100910
  Receipt Date: 20100901
  Transmission Date: 20110219
  Serious: Yes (Other)
  Sender: FDA-Public Use
  Company Number: GXKR2010GB09983

PATIENT
  Age: 66 Year
  Sex: Male
  Weight: 103 kg

DRUGS (6)
  1. AMLODIPINE BESYLATE (NGX) [Interacting]
     Indication: BLOOD PRESSURE INCREASED
     Dosage: 10 MG, QD
     Route: 065
     Dates: end: 20100610
  2. DARUNAVIR ETHANOLATE [Interacting]
     Indication: HIV INFECTION
     Dosage: 800 MG, QD
     Route: 048
     Dates: start: 20100412
  3. RITONAVIR [Suspect]
     Indication: HIV INFECTION
     Dosage: 100 MG, QD
     Route: 048
     Dates: start: 20100412
  4. AMLODIPINE [Concomitant]
     Indication: HIV INFECTION
     Dosage: 1 DAY
     Route: 065
     Dates: start: 20100421
  5. RITONAVIR [Concomitant]
     Indication: HERPES SIMPLEX
     Dosage: 500 MG, BID
     Route: 065
  6. EMTRICITABINE/TENOFOVIR DISOPROXIL FUMARATE [Concomitant]
     Indication: SPLENECTOMY
     Route: 065

REACTIONS (3)
  - DRUG INTERACTION [None]
  - MERALGIA PARAESTHETICA [None]
  - OEDEMA PERIPHERAL [None]
